FAERS Safety Report 10691280 (Version 1)
Quarter: 2015Q1

REPORT INFORMATION
  Report Type: Spontaneous
  Country: FR (occurrence: FR)
  Receive Date: 20150105
  Receipt Date: 20150105
  Transmission Date: 20150720
  Serious: Yes (Other)
  Sender: FDA-Public Use
  Company Number: FR-PFIZER INC-2015001424

PATIENT
  Age: 46 Year
  Sex: Female

DRUGS (3)
  1. ACETYLCYSTEINE. [Suspect]
     Active Substance: ACETYLCYSTEINE
     Indication: BRONCHITIS
     Dosage: UNK
     Route: 048
     Dates: start: 20140909, end: 20140913
  2. ORELOX [Suspect]
     Active Substance: CEFPODOXIME
     Indication: BRONCHITIS
     Dosage: UNK
     Route: 048
     Dates: start: 20140909, end: 20140914
  3. TOPLEXIL [Suspect]
     Active Substance: UNSPECIFIED INGREDIENT
     Indication: BRONCHITIS
     Dosage: UNK
     Route: 048
     Dates: start: 20140909, end: 20140914

REACTIONS (2)
  - Rash maculo-papular [Recovering/Resolving]
  - Photosensitivity reaction [Recovering/Resolving]

NARRATIVE: CASE EVENT DATE: 20140913
